FAERS Safety Report 16388169 (Version 1)
Quarter: 2019Q2

REPORT INFORMATION
  Report Type: Spontaneous
  Country: US (occurrence: US)
  Receive Date: 20190604
  Receipt Date: 20190604
  Transmission Date: 20190711
  Serious: Yes (Hospitalization, Other)
  Sender: FDA-Public Use
  Company Number: US-BRAINTREE LABORATORIES-190279-1

PATIENT
  Age: 74 Year
  Sex: Male
  Weight: 58.97 kg

DRUGS (1)
  1. GOLYTELY [Suspect]
     Active Substance: POLYETHYLENE GLYCOL 3350\POTASSIUM CHLORIDE\SODIUM BICARBONATE\SODIUM CHLORIDE\SODIUM SULFATE ANHYDROUS
     Indication: OFF LABEL USE
     Dosage: 4L
     Route: 048
     Dates: start: 20190228, end: 20190301

REACTIONS (6)
  - Dyspnoea [None]
  - Wrong technique in product usage process [None]
  - Dizziness [None]
  - Diarrhoea [None]
  - Cardiac arrest [None]
  - Blood pressure decreased [None]

NARRATIVE: CASE EVENT DATE: 20190301
